FAERS Safety Report 7152048-4 (Version None)
Quarter: 2010Q4

REPORT INFORMATION
  Report Type: 
  Country: None (occurrence: None)
  Receive Date: 20101212
  Receipt Date: 20101129
  Transmission Date: 20110411
  Serious: Yes (Other)
  Sender: FDA-Public Use
  Company Number: NL-MYLANLABS-2010S1022070

PATIENT
  Age: 52 Year
  Sex: Male

DRUGS (5)
  1. TENOFOVIR DISOPROXIL FUMARATE [Interacting]
     Indication: HIV INFECTION
     Route: 065
     Dates: start: 20070101
  2. DIDANOSINE [Suspect]
     Indication: HIV INFECTION
     Route: 065
     Dates: start: 20070101
  3. ATAZANAVIR [Interacting]
     Indication: HIV INFECTION
     Route: 065
     Dates: start: 20070101
  4. RITONAVIR [Interacting]
     Indication: HIV INFECTION
     Route: 065
     Dates: start: 20070101
  5. EMTRICITABINE [Concomitant]
     Indication: HIV INFECTION
     Route: 065

REACTIONS (3)
  - DRUG INTERACTION [None]
  - MITOCHONDRIAL TOXICITY [None]
  - RENAL TUBULAR DISORDER [None]
